FAERS Safety Report 25339574 (Version 1)
Quarter: 2025Q2

REPORT INFORMATION
  Report Type: Report from Study
  Country: GR (occurrence: GR)
  Receive Date: 20250521
  Receipt Date: 20250521
  Transmission Date: 20250717
  Serious: Yes (Other)
  Sender: CSL BEHRING
  Company Number: GR-BEH-2025204147

PATIENT
  Age: 79 Year
  Sex: Male

DRUGS (1)
  1. HIZENTRA [Suspect]
     Active Substance: HUMAN IMMUNOGLOBULIN G
     Indication: Secondary immunodeficiency
     Dosage: 40 ML, QW
     Route: 058
     Dates: start: 20250502, end: 20250502

REACTIONS (7)
  - Pupil fixed [Recovered/Resolved]
  - Tremor [Recovered/Resolved]
  - Skin discolouration [Recovered/Resolved]
  - Blood pressure increased [Recovered/Resolved]
  - Refusal of treatment by patient [Unknown]
  - Fear [Unknown]
  - Chills [Recovered/Resolved]

NARRATIVE: CASE EVENT DATE: 20250502
